FAERS Safety Report 8414665-0 (Version None)
Quarter: 2012Q2

REPORT INFORMATION
  Report Type: 
  Country: None (occurrence: None)
  Receive Date: 20120605
  Receipt Date: 20120529
  Transmission Date: 20120825
  Serious: Yes (Other)
  Sender: FDA-Public Use
  Company Number: JP-ABBOTT-12P-087-0936380-00

PATIENT
  Sex: Female

DRUGS (7)
  1. CLARITHROMYCIN [Suspect]
     Indication: HELICOBACTER INFECTION
     Route: 048
  2. AMOXICILLIN [Concomitant]
     Indication: PROPHYLAXIS
  3. CLARITHROMYCIN [Suspect]
  4. RABEPRAZOLE SODIUM [Concomitant]
     Indication: PROPHYLAXIS
     Dosage: OVER TWO DOSING EACH DAY
  5. AMOXICILLIN [Concomitant]
     Indication: HELICOBACTER INFECTION
     Route: 048
  6. RABEPRAZOLE SODIUM [Concomitant]
  7. UNKNOWN PRODUCT [Concomitant]
     Indication: PRODUCT USED FOR UNKNOWN INDICATION
     Route: 048

REACTIONS (2)
  - DRUG ERUPTION [None]
  - ERYTHEMA MULTIFORME [None]
